FAERS Safety Report 4425304-8 (Version None)
Quarter: 2004Q3

REPORT INFORMATION
  Report Type: 
  Country: None (occurrence: None)
  Receive Date: 20040813
  Receipt Date: 20040805
  Transmission Date: 20050211
  Serious: Yes (Hospitalization)
  Sender: FDA-Public Use
  Company Number: FR-BRISTOL-MYERS SQUIBB COMPANY-12661898

PATIENT
  Age: 73 Year
  Sex: Male

DRUGS (7)
  1. LOPRIL TABS 25 MG [Suspect]
     Indication: TRANSIENT ISCHAEMIC ATTACK
     Dosage: 25MG TABLET -DATES UNKNOWN
     Route: 048
  2. ASPIRIN [Suspect]
     Indication: TRANSIENT ISCHAEMIC ATTACK
     Route: 048
  3. EXELON [Suspect]
     Indication: DEMENTIA ALZHEIMER'S TYPE
     Dosage: 1.5MG- 6MG DAY (1 IN MORNING; 1 AT NOON; 2 IN EVENING).
     Route: 048
  4. MEMANTINE HCL [Suspect]
     Indication: DEMENTIA ALZHEIMER'S TYPE
     Dosage: 1 TAB TWICE DAILY
     Route: 048
     Dates: start: 20040329, end: 20040622
  5. ZOPICLONE [Suspect]
     Route: 048
  6. OMEPRAZOLE [Suspect]
     Route: 048
  7. GAVISCON ADVANCE [Concomitant]
     Dosage: 1 TAB PER DAY

REACTIONS (2)
  - CONVULSION [None]
  - FALL [None]
